FAERS Safety Report 8261885-4 (Version None)
Quarter: 2012Q1

REPORT INFORMATION
  Report Type: 
  Country: None (occurrence: None)
  Receive Date: 20120321
  Receipt Date: 20120110
  Transmission Date: 20120608
  Serious: Yes (Hospitalization)
  Sender: FDA-Public Use
  Company Number: 2012SP001813

PATIENT
  Age: 71 Year
  Sex: Male

DRUGS (1)
  1. SYLATRON [Suspect]
     Indication: MALIGNANT MELANOMA
     Dosage: 888 MCG; SC
     Route: 058
     Dates: start: 20111116, end: 20111205

REACTIONS (1)
  - NEUROPATHY PERIPHERAL [None]
